FAERS Safety Report 15501417 (Version 1)
Quarter: 2020Q3

REPORT INFORMATION
  Report Type: Spontaneous
  Country: FR (occurrence: FR)
  Receive Date: 20181015
  Receipt Date: 20181015
  Transmission Date: 20201104
  Serious: Yes (Hospitalization)
  Sender: FDA-Public Use
  Company Number: FR-009507513-1810FRA003834

PATIENT
  Age: 70 Year
  Sex: Female
  Weight: 57 kg

DRUGS (10)
  1. AMIKACIN. [Suspect]
     Active Substance: AMIKACIN
     Indication: ACUTE MYELOID LEUKAEMIA
     Dosage: 1 DF, ONCE (IN TOTAL)
     Route: 042
     Dates: start: 20180804, end: 20180804
  2. BELUSTINE [Suspect]
     Active Substance: LOMUSTINE
     Indication: ACUTE MYELOID LEUKAEMIA
     Dosage: 1 DF, CYCLICAL
     Route: 048
     Dates: start: 20180802, end: 20180802
  3. ARACYTINE [Suspect]
     Active Substance: CYTARABINE
     Indication: ACUTE MYELOID LEUKAEMIA
     Dosage: 1 DF, QD (LYOPHILISATE AND SOLUTION FOR PARENTERAL USE)
     Route: 042
     Dates: start: 20180801, end: 20180808
  4. AXEPIM [Suspect]
     Active Substance: CEFEPIME HYDROCHLORIDE
     Indication: ACUTE MYELOID LEUKAEMIA
     Dosage: 1 DF, QD
     Route: 042
     Dates: start: 20180802, end: 20180823
  5. BACTRIM [Suspect]
     Active Substance: SULFAMETHOXAZOLE\TRIMETHOPRIM
     Indication: ACUTE MYELOID LEUKAEMIA
     Dosage: 1 DF, QD
     Route: 048
     Dates: start: 20180808, end: 20180830
  6. ZAVEDOS [Suspect]
     Active Substance: IDARUBICIN
     Indication: ACUTE MYELOID LEUKAEMIA
     Dosage: 13.7 MG, QD
     Route: 042
     Dates: start: 20180802, end: 20180806
  7. VANCOMYCIN [Suspect]
     Active Substance: VANCOMYCIN
     Indication: ACUTE MYELOID LEUKAEMIA
     Dosage: 1 DF, QD
     Route: 042
     Dates: start: 20180817, end: 20180820
  8. ZELITREX [Suspect]
     Active Substance: VALACYCLOVIR HYDROCHLORIDE
     Indication: ACUTE MYELOID LEUKAEMIA
     Dosage: 1 DF, QD
     Route: 048
     Dates: start: 20180808, end: 20180830
  9. NOXAFIL [Suspect]
     Active Substance: POSACONAZOLE
     Indication: ACUTE MYELOID LEUKAEMIA
     Dosage: 300 MG, QD (GASTRO?RESISTANT TABLET)
     Route: 048
     Dates: start: 20180809, end: 20180823
  10. GRANOCYTE [Suspect]
     Active Substance: LENOGRASTIM
     Indication: PROPHYLAXIS
     Dosage: 39.8 MILLION IU, ONCE(IN TOTAL)
     Route: 058
     Dates: start: 20180809, end: 20180809

REACTIONS (1)
  - Toxic epidermal necrolysis [Recovering/Resolving]

NARRATIVE: CASE EVENT DATE: 20180817
